FAERS Safety Report 4825510-4 (Version None)
Quarter: 2005Q4

REPORT INFORMATION
  Report Type: 
  Country: None (occurrence: None)
  Receive Date: 20051111
  Receipt Date: 20051101
  Transmission Date: 20060501
  Serious: Yes (Hospitalization)
  Sender: FDA-Public Use
  Company Number: GB-ABBOTT-05P-167-0316334-00

PATIENT
  Age: 84 Year
  Sex: Female

DRUGS (1)
  1. GOPTEN [Suspect]
     Indication: HYPERTENSION
     Route: 048
     Dates: start: 19970101, end: 20051029

REACTIONS (2)
  - DYSPNOEA [None]
  - RASH [None]
